FAERS Safety Report 8810965 (Version 2)
Quarter: 2012Q4

REPORT INFORMATION
  Report Type: Spontaneous
  Country: US (occurrence: None)
  Receive Date: 20120921
  Receipt Date: 20120926
  Transmission Date: 20130627
  Serious: Yes (Other)
  Sender: FDA-Public Use
  Company Number: AUR-APL-2012-04002

PATIENT
  Age: 50 Year
  Sex: Female

DRUGS (2)
  1. METFORMIN (METFORMIN) [Suspect]
     Indication: DIABETES
     Route: 048
     Dates: start: 20120805
  2. REBIF [Suspect]
     Indication: DRUG USE FOR UNKNOWN INDICATION
     Dosage: 18.8571 mcg (44 mcg, 3 in 1 wk), subcutaneous
     Route: 058
     Dates: start: 201109

REACTIONS (5)
  - Malaise [None]
  - Malaise [None]
  - Fatigue [None]
  - Incontinence [None]
  - Decreased activity [None]
